FAERS Safety Report 4304077-3 (Version None)
Quarter: 2004Q1

REPORT INFORMATION
  Report Type: 
  Country: None (occurrence: None)
  Receive Date: 20040223
  Receipt Date: 20031217
  Transmission Date: 20041129
  Serious: No
  Sender: FDA-Public Use
  Company Number: PHEH2003US11517

PATIENT
  Age: 54 Year
  Sex: Female

DRUGS (3)
  1. ZELNORM [Suspect]
     Indication: IRRITABLE BOWEL SYNDROME
     Dosage: 6 MG, BID; 3 MG, BID
     Dates: start: 20031206, end: 20031207
  2. ZELNORM [Suspect]
     Indication: IRRITABLE BOWEL SYNDROME
     Dosage: 6 MG, BID; 3 MG, BID
     Dates: start: 20031208, end: 20031217
  3. MULTIVITAMINS (PANTHENOL, RETINOL) [Concomitant]

REACTIONS (7)
  - DEPRESSED MOOD [None]
  - DIARRHOEA [None]
  - EYE PAIN [None]
  - FACE OEDEMA [None]
  - INSOMNIA [None]
  - MUSCLE CRAMP [None]
  - PAIN IN EXTREMITY [None]
